FAERS Safety Report 14689431 (Version 1)
Quarter: 2018Q1

REPORT INFORMATION
  Report Type: Spontaneous
  Country: CN (occurrence: CN)
  Receive Date: 20180328
  Receipt Date: 20180328
  Transmission Date: 20180509
  Serious: Yes (Death, Other)
  Sender: FDA-Public Use
  Company Number: CN-B.I. PHARMACEUTICALS,INC./RIDGEFIELD-2018-BI-016836

PATIENT
  Age: 41 Year
  Sex: Male

DRUGS (4)
  1. GEMCITABINE [Concomitant]
     Active Substance: GEMCITABINE\GEMCITABINE HYDROCHLORIDE
     Indication: LUNG ADENOCARCINOMA STAGE IV
     Route: 065
  2. GEMCITABINE [Concomitant]
     Active Substance: GEMCITABINE\GEMCITABINE HYDROCHLORIDE
     Dosage: FOR 3 CYCLE
  3. CARBOPLATIN. [Concomitant]
     Active Substance: CARBOPLATIN
     Indication: LUNG ADENOCARCINOMA STAGE IV
     Dosage: FOR 4 CYCLE
     Route: 065
  4. GILOTRIF [Suspect]
     Active Substance: AFATINIB
     Indication: LUNG ADENOCARCINOMA STAGE IV
     Route: 065
     Dates: start: 201605

REACTIONS (8)
  - Malignant neoplasm progression [Unknown]
  - Fatigue [Unknown]
  - Death [Fatal]
  - Metastases to central nervous system [Unknown]
  - Rash [Unknown]
  - Decreased appetite [Unknown]
  - Pleural effusion [Unknown]
  - Metastases to liver [Unknown]

NARRATIVE: CASE EVENT DATE: 201610
